FAERS Safety Report 4929096-5 (Version None)
Quarter: 2006Q1

REPORT INFORMATION
  Report Type: 
  Country: None (occurrence: None)
  Receive Date: 20060301
  Receipt Date: 20060209
  Transmission Date: 20060701
  Serious: Yes (Hospitalization)
  Sender: FDA-Public Use
  Company Number: US-ROCHE-436179

PATIENT
  Age: 48 Year
  Sex: Female

DRUGS (2)
  1. PEGASYS [Suspect]
     Dosage: 180 MCG/WEEK.
     Route: 058
     Dates: start: 20051014, end: 20060128
  2. COPEGUS [Suspect]
     Route: 048
     Dates: start: 20051014, end: 20060128

REACTIONS (7)
  - BREAST CYST [None]
  - DEPRESSION [None]
  - HYPERSENSITIVITY [None]
  - INFLUENZA LIKE ILLNESS [None]
  - INSOMNIA [None]
  - LOSS OF CONSCIOUSNESS [None]
  - PYREXIA [None]
